FAERS Safety Report 17942058 (Version 2)
Quarter: 2020Q3

REPORT INFORMATION
  Report Type: Spontaneous
  Country: US (occurrence: US)
  Receive Date: 20200625
  Receipt Date: 20200803
  Transmission Date: 20201103
  Serious: No
  Sender: FDA-Public Use
  Company Number: US-SA-2020SA161335

PATIENT

DRUGS (1)
  1. LANTUS [Suspect]
     Active Substance: INSULIN GLARGINE
     Indication: TYPE 2 DIABETES MELLITUS
     Dosage: 35 UNITS IN MORNING AND 10 UNITS IN NIGHT
     Route: 065

REACTIONS (4)
  - Product storage error [Unknown]
  - Blood glucose increased [Unknown]
  - Visual impairment [Unknown]
  - Inappropriate schedule of product administration [Unknown]
